FAERS Safety Report 8116385-9 (Version None)
Quarter: 2012Q1

REPORT INFORMATION
  Report Type: 
  Country: None (occurrence: None)
  Receive Date: 20120206
  Receipt Date: 20120131
  Transmission Date: 20120608
  Serious: Yes (Life-Threatening)
  Sender: FDA-Public Use
  Company Number: GB-VIIV HEALTHCARE LIMITED-B0778464A

PATIENT
  Age: 57 Year
  Sex: Female
  Weight: 37 kg

DRUGS (4)
  1. COMBIVIR [Suspect]
     Indication: HIV INFECTION
     Dosage: 1IUAX PER DAY
     Route: 048
     Dates: start: 20111219, end: 20120105
  2. RITONAVIR [Suspect]
     Indication: HIV INFECTION
     Dosage: 100MG PER DAY
     Route: 048
     Dates: start: 20111219, end: 20120105
  3. COTRIM [Concomitant]
     Indication: CD4 LYMPHOCYTES DECREASED
     Dosage: 1097.1429MG CUMULATIVE DOSE
     Route: 048
     Dates: start: 20111219, end: 20120105
  4. DARUNAVIR [Suspect]
     Indication: HIV INFECTION
     Dosage: 800MG PER DAY
     Route: 048
     Dates: start: 20111219, end: 20120105

REACTIONS (1)
  - MITOCHONDRIAL TOXICITY [None]
